FAERS Safety Report 14383851 (Version 2)
Quarter: 2018Q1

REPORT INFORMATION
  Report Type: Report from Study
  Country: US (occurrence: US)
  Receive Date: 20180115
  Receipt Date: 20180123
  Transmission Date: 20180509
  Serious: Yes (Hospitalization, Other)
  Sender: FDA-Public Use
  Company Number: US-GILEAD-2018-0314434

PATIENT
  Age: 77 Year
  Sex: Female

DRUGS (1)
  1. IDELALISIB [Suspect]
     Active Substance: IDELALISIB
     Indication: CHOLANGIOCARCINOMA
     Dosage: 100MG BY MOUTH TWICE DAILY
     Route: 048
     Dates: start: 20171102, end: 20171228

REACTIONS (4)
  - Pulmonary embolism [Not Recovered/Not Resolved]
  - Disease progression [Not Recovered/Not Resolved]
  - Drain site complication [Not Recovered/Not Resolved]
  - Deep vein thrombosis [Not Recovered/Not Resolved]
